FAERS Safety Report 6309217-2 (Version None)
Quarter: 2009Q3

REPORT INFORMATION
  Report Type: 
  Country: None (occurrence: None)
  Receive Date: 20090814
  Receipt Date: 20090714
  Transmission Date: 20100115
  Serious: Yes (Other)
  Sender: FDA-Public Use
  Company Number: JP-PFIZER INC-2009234140

PATIENT
  Age: 49 Year

DRUGS (8)
  1. MIGLITOL [Suspect]
     Indication: TYPE 2 DIABETES MELLITUS
     Dosage: 75 MG, UNK
     Route: 048
     Dates: start: 20090109, end: 20090207
  2. ACTOS [Suspect]
     Indication: TYPE 2 DIABETES MELLITUS
     Dosage: 7.5 MG, UNK
     Route: 048
     Dates: start: 20090124, end: 20090207
  3. METFORMIN HYDROCHLORIDE [Concomitant]
     Indication: TYPE 2 DIABETES MELLITUS
     Dosage: 750 MG, UNK
     Route: 048
     Dates: end: 20090207
  4. AMARYL [Concomitant]
     Indication: TYPE 2 DIABETES MELLITUS
     Dosage: 6 MG, UNK
     Route: 048
     Dates: start: 20090124, end: 20090207
  5. AMARYL [Concomitant]
     Dosage: 2 MG, UNK
     Route: 048
     Dates: start: 20090109, end: 20090116
  6. AMARYL [Concomitant]
     Dosage: 4 MG, UNK
     Route: 048
     Dates: start: 20090116, end: 20090124
  7. AMLODIPINE BESILATE [Concomitant]
     Dosage: 5 MG, UNK
     Route: 048
     Dates: start: 20090124, end: 20090207
  8. OLMETEC [Concomitant]
     Dosage: 20 MG, UNK
     Route: 048
     Dates: start: 20090109, end: 20090207

REACTIONS (1)
  - HEPATIC FUNCTION ABNORMAL [None]
